FAERS Safety Report 8389292-4 (Version None)
Quarter: 2012Q2

REPORT INFORMATION
  Report Type: 
  Country: None (occurrence: None)
  Receive Date: 20120528
  Receipt Date: 20120517
  Transmission Date: 20120825
  Serious: Yes (Other)
  Sender: FDA-Public Use
  Company Number: GB-ALLERGAN-1202925US

PATIENT
  Age: 82 Year
  Sex: Male

DRUGS (1)
  1. OZURDEX [Suspect]
     Indication: RETINAL VEIN OCCLUSION
     Dosage: UNK
     Route: 031
     Dates: start: 20111219, end: 20111219

REACTIONS (2)
  - VISUAL ACUITY REDUCED [None]
  - ENDOPHTHALMITIS [None]
